FAERS Safety Report 14080857 (Version 1)
Quarter: 2017Q4

REPORT INFORMATION
  Report Type: Other
  Country: FR (occurrence: FR)
  Receive Date: 20171012
  Receipt Date: 20171012
  Transmission Date: 20180321
  Serious: Yes (Hospitalization)
  Sender: FDA-Public Use
  Company Number: FR-TAKEDA-2017TUS020910

PATIENT
  Age: 39 Year
  Sex: Male

DRUGS (2)
  1. ENTYVIO [Suspect]
     Active Substance: VEDOLIZUMAB
     Indication: CROHN^S DISEASE
     Dosage: 300 MG, MONTHLY
     Route: 042
     Dates: start: 20170323, end: 20170424
  2. SOLUPRED                           /00016201/ [Concomitant]
     Active Substance: PREDNISOLONE
     Indication: CROHN^S DISEASE
     Dosage: 40 MG, QD
     Route: 048
     Dates: start: 20170323, end: 20170509

REACTIONS (1)
  - Tuberculosis gastrointestinal [Recovering/Resolving]

NARRATIVE: CASE EVENT DATE: 20170509
